FAERS Safety Report 24809109 (Version 1)
Quarter: 2025Q1

REPORT INFORMATION
  Report Type: Report from Study
  Country: US (occurrence: US)
  Receive Date: 20250106
  Receipt Date: 20250106
  Transmission Date: 20250409
  Serious: Yes (Other)
  Sender: GILEAD
  Company Number: US-GILEAD-2025-0698733

PATIENT
  Age: 23 Year
  Sex: Male

DRUGS (1)
  1. AZTREONAM LYSINE [Suspect]
     Active Substance: AZTREONAM LYSINE
     Indication: Cystic fibrosis lung
     Dosage: UNK UNK, TID (3 TIMES A DAY FOR 28 DAYS ON AND 28 DAYS OFF )
     Route: 065
     Dates: start: 202001

REACTIONS (1)
  - Atypical mycobacterial infection [Unknown]
